FAERS Safety Report 7948684-5 (Version None)
Quarter: 2011Q4

REPORT INFORMATION
  Report Type: 
  Country: None (occurrence: None)
  Receive Date: 20111130
  Receipt Date: 20111130
  Transmission Date: 20120403
  Serious: Yes (Hospitalization)
  Sender: FDA-Public Use
  Company Number: None

PATIENT
  Sex: Female
  Weight: 61.1 kg

DRUGS (1)
  1. NUVARING [Suspect]
     Route: 067

REACTIONS (4)
  - PULMONARY EMBOLISM [None]
  - MUSCLE SPASMS [None]
  - PNEUMONIA [None]
  - LOSS OF CONSCIOUSNESS [None]
